FAERS Safety Report 14774443 (Version 1)
Quarter: 2018Q2

REPORT INFORMATION
  Report Type: Spontaneous
  Country: US (occurrence: US)
  Receive Date: 20180418
  Receipt Date: 20180418
  Transmission Date: 20180711
  Serious: Yes (Other)
  Sender: FDA-Public Use
  Company Number: US-MYLANLABS-2018M1024399

PATIENT
  Sex: Male

DRUGS (1)
  1. EPIPEN JR [Suspect]
     Active Substance: EPINEPHRINE
     Indication: PRODUCT USED FOR UNKNOWN INDICATION
     Dosage: 0.3 ML, UNK
     Route: 030

REACTIONS (3)
  - Device malfunction [Unknown]
  - Drug dose omission [Unknown]
  - Needle issue [Unknown]
